FAERS Safety Report 9379923 (Version 2)
Quarter: 2013Q3

REPORT INFORMATION
  Report Type: Report from Study
  Country: US (occurrence: US)
  Receive Date: 20130702
  Receipt Date: 20130710
  Transmission Date: 20140515
  Serious: Yes (Hospitalization)
  Sender: FDA-Public Use
  Company Number: US-BAYER-2013-066877

PATIENT
  Age: 68 Year
  Sex: Female
  Weight: 37.64 kg

DRUGS (4)
  1. STIVARGA [Suspect]
     Indication: COLON CANCER
     Dosage: 120 MG, QD (AM X 21 DAYS)
     Route: 048
     Dates: start: 20130423, end: 20130519
  2. ARIMIDEX [Concomitant]
     Indication: BREAST CANCER
     Dosage: 1 MG DAILY
     Dates: start: 201107
  3. OMEPRAZOLE [Concomitant]
     Indication: GASTROOESOPHAGEAL REFLUX DISEASE
     Dosage: 20 MG DAILY
     Dates: start: 201009
  4. COUMADIN [Concomitant]
     Indication: DEEP VEIN THROMBOSIS
     Dosage: 4 MG DAILY
     Dates: start: 201208

REACTIONS (6)
  - Drug hypersensitivity [Recovered/Resolved]
  - Rash [Recovered/Resolved]
  - Ear swelling [None]
  - Erythema [None]
  - Skin discolouration [None]
  - Local swelling [None]
